FAERS Safety Report 18633373 (Version 1)
Quarter: 2020Q4

REPORT INFORMATION
  Report Type: Report from Study
  Country: US (occurrence: US)
  Receive Date: 20201218
  Receipt Date: 20201218
  Transmission Date: 20210114
  Serious: No
  Sender: FDA-Public Use
  Company Number: US-REGENERON PHARMACEUTICALS, INC.-2020-11909

PATIENT

DRUGS (3)
  1. EYLEA [Suspect]
     Active Substance: AFLIBERCEPT
     Dosage: 2MG 0.05ML SDV, INTO BOTH EYES EVERY 28 DAYS
     Route: 031
  2. EYLEA [Suspect]
     Active Substance: AFLIBERCEPT
     Indication: DIABETIC RETINAL OEDEMA
     Dosage: 2MG 0.05ML SDV, INTO BOTH EYES EVERY 28 DAYS
     Route: 031
     Dates: start: 201912, end: 201912
  3. EYLEA [Suspect]
     Active Substance: AFLIBERCEPT
     Indication: DIABETIC RETINOPATHY
     Dosage: 2MG 0.05ML SDV, INTO BOTH EYES EVERY 28 DAYS
     Route: 031

REACTIONS (4)
  - Eye swelling [Not Recovered/Not Resolved]
  - Product dose omission issue [Unknown]
  - Eye pain [Not Recovered/Not Resolved]
  - Vitreous floaters [Not Recovered/Not Resolved]

NARRATIVE: CASE EVENT DATE: 20191218
